FAERS Safety Report 10645341 (Version 1)
Quarter: 2014Q4

REPORT INFORMATION
  Report Type: Spontaneous
  Country: US (occurrence: None)
  Receive Date: 20141210
  Receipt Date: 20141210
  Transmission Date: 20150529
  Serious: No
  Sender: FDA-Public Use
  Company Number: None

PATIENT
  Age: 72 Year
  Sex: Female

DRUGS (1)
  1. PROLIA [Suspect]
     Active Substance: DENOSUMAB
     Indication: OSTEOPOROSIS
     Dosage: 60MG  Q 6 MONTHS  SUBCUTANEOUS
     Route: 058
     Dates: start: 20130718

REACTIONS (1)
  - Arthralgia [None]

NARRATIVE: CASE EVENT DATE: 20140130
